FAERS Safety Report 8330253-9 (Version None)
Quarter: 2012Q2

REPORT INFORMATION
  Report Type: 
  Country: None (occurrence: None)
  Receive Date: 20120502
  Receipt Date: 20120426
  Transmission Date: 20120825
  Serious: Yes (Hospitalization)
  Sender: FDA-Public Use
  Company Number: FR-PFIZER INC-2012103599

PATIENT
  Age: 51 Year
  Sex: Female

DRUGS (4)
  1. SOLU-MEDROL [Suspect]
     Indication: MULTIPLE SCLEROSIS RELAPSE
     Dosage: 3 G, SINGLE
     Dates: start: 20100917
  2. ACETAMINOPHEN AND TRAMADOL HCL [Concomitant]
     Dosage: 1 DF, 4X/DAY
  3. LOVENOX [Concomitant]
     Dosage: UNK
  4. SOLU-MEDROL [Suspect]
     Dosage: 1 G, MONTHLY

REACTIONS (2)
  - FRACTURE [None]
  - OSTEOPENIA [None]
